FAERS Safety Report 24216400 (Version 1)
Quarter: 2024Q3

REPORT INFORMATION
  Report Type: Spontaneous
  Country: IN (occurrence: IN)
  Receive Date: 20240816
  Receipt Date: 20240816
  Transmission Date: 20241017
  Serious: Yes (Other)
  Sender: RANBAXY
  Company Number: IN-SUN PHARMACEUTICAL INDUSTRIES LTD-2024R1-462604

PATIENT
  Age: 26 Year
  Sex: Male

DRUGS (1)
  1. TRIAMCINOLONE [Suspect]
     Active Substance: TRIAMCINOLONE
     Indication: Hypertrophic scar
     Dosage: 40 MILLIGRAM PER MILLILITRE, OVER THE INDIVIDUAL SCARS AT 1-3 MONTH INTERVALS
     Route: 026

REACTIONS (1)
  - Dermal absorption impaired [Unknown]
